FAERS Safety Report 5655519-2 (Version None)
Quarter: 2008Q1

REPORT INFORMATION
  Report Type: 
  Country: None (occurrence: None)
  Receive Date: 20080307
  Receipt Date: 20080225
  Transmission Date: 20080703
  Serious: Yes (Hospitalization)
  Sender: FDA-Public Use
  Company Number: DE-ROCHE-548290

PATIENT
  Age: 30 Year
  Sex: Female
  Weight: 50 kg

DRUGS (5)
  1. LARIAM [Suspect]
     Indication: SUICIDAL IDEATION
     Route: 048
  2. IMODIUM [Suspect]
     Indication: SUICIDAL IDEATION
     Dosage: DRUG REPORTED AS ^LOPERAMIDE HYDROCHLORIDE^
     Route: 048
  3. GELONIDA [Suspect]
     Indication: SUICIDAL IDEATION
     Dosage: DRUG REPORTED AS ^PANADEINE CO^
     Route: 048
  4. IBUPROFEN [Suspect]
     Indication: SUICIDAL IDEATION
     Route: 048
  5. TALVOSILEN [Suspect]
     Indication: SUICIDAL IDEATION
     Dosage: DRUG REPORTED AS ^PANADEINE CO^
     Route: 048

REACTIONS (4)
  - LIVER FUNCTION TEST ABNORMAL [None]
  - OVERDOSE [None]
  - SOMNOLENCE [None]
  - SUICIDAL IDEATION [None]
